FAERS Safety Report 16277109 (Version 1)
Quarter: 2019Q2

REPORT INFORMATION
  Report Type: Spontaneous
  Country: US (occurrence: US)
  Receive Date: 20190401
  Receipt Date: 20190401
  Transmission Date: 20190711
  Serious: No
  Sender: FDA-Public Use
  Company Number: None

PATIENT
  Age: 68 Year
  Sex: Female

DRUGS (1)
  1. TALTZ [Suspect]
     Active Substance: IXEKIZUMAB
     Indication: PSORIASIS
     Dosage: 80 MG (1 PEN) EVERY 4 WEEKS THERAFTER AS DIRECTED
     Route: 058
     Dates: start: 201903

REACTIONS (4)
  - Injection site erythema [None]
  - Injection site swelling [None]
  - Injection site pain [None]
  - Gait inability [None]
